FAERS Safety Report 23346716 (Version 11)
Quarter: 2024Q4

REPORT INFORMATION
  Report Type: Spontaneous
  Country: CA (occurrence: CA)
  Receive Date: 20231228
  Receipt Date: 20241219
  Transmission Date: 20250114
  Serious: Yes (Other)
  Sender: PFIZER
  Company Number: CA-PFIZER INC-PV202300190890

PATIENT
  Age: 74 Year
  Sex: Female
  Weight: 71.1 kg

DRUGS (3)
  1. IBRANCE [Suspect]
     Active Substance: PALBOCICLIB
     Indication: Breast cancer stage IV
     Dosage: 100 MG, DAILY ON DAY 1 TO DAY 21 THEN 7 DAY OFF
     Route: 048
     Dates: start: 20170608
  2. IBRANCE [Suspect]
     Active Substance: PALBOCICLIB
     Indication: Breast cancer metastatic
     Dosage: 100 MG, ON DAY 1 TO DAY 21 (DOSED AT 75% OF 133MG)
     Route: 048
     Dates: start: 20241211
  3. LETROZOLE [Concomitant]
     Active Substance: LETROZOLE
     Indication: Breast cancer stage IV
     Dosage: UNK
     Dates: start: 201706

REACTIONS (3)
  - Myelosuppression [Not Recovered/Not Resolved]
  - Neutropenia [Recovering/Resolving]
  - Leukopenia [Not Recovered/Not Resolved]
